FAERS Safety Report 15298937 (Version 3)
Quarter: 2018Q3

REPORT INFORMATION
  Report Type: Spontaneous
  Country: FR (occurrence: FR)
  Receive Date: 20180821
  Receipt Date: 20180903
  Transmission Date: 20181010
  Serious: Yes (Hospitalization)
  Sender: FDA-Public Use
  Company Number: FR-ROCHE-2171861

PATIENT
  Age: 62 Year
  Sex: Female

DRUGS (6)
  1. OXALIPLATINE [Suspect]
     Active Substance: OXALIPLATIN
     Indication: MARGINAL ZONE LYMPHOMA
     Dosage: NON RENSEIGNEE?DATE OF MOST RECENT DOSE: 19/JUL/2018
     Route: 042
     Dates: start: 20180719
  2. EMEND [Suspect]
     Active Substance: APREPITANT
     Indication: VOMITING
     Dosage: NON RENSEIGNEE?DATE OF MOST RECENT DOSE: 20/JUL/2018
     Route: 048
     Dates: start: 20180719
  3. MABTHERA [Suspect]
     Active Substance: RITUXIMAB
     Indication: MARGINAL ZONE LYMPHOMA
     Dosage: NON RENSEIGNEE?DATE OF MOST RECENT DOSE: 19/JUL/2018
     Route: 042
     Dates: start: 20180719
  4. POLARAMINE [Suspect]
     Active Substance: DEXCHLORPHENIRAMINE MALEATE
     Indication: ALLERGY PROPHYLAXIS
     Dosage: DATE OF MOST RECENT DOSE ADMINISTERED: 20/JUL/2018
     Route: 048
     Dates: start: 20180719
  5. ZOPHREN [Suspect]
     Active Substance: ONDANSETRON
     Indication: VOMITING
     Dosage: DATE OF MOST RECENT DOSE: 20/JUL/2018
     Route: 048
     Dates: start: 20180719
  6. CYTARABINE. [Suspect]
     Active Substance: CYTARABINE
     Indication: MARGINAL ZONE LYMPHOMA
     Dosage: DATE OF MOST RECENT DOSE ADMINISTERED: 20/JUL/2018
     Route: 065
     Dates: start: 20180720

REACTIONS (1)
  - Hepatocellular injury [Recovering/Resolving]

NARRATIVE: CASE EVENT DATE: 20180723
